FAERS Safety Report 4268842-3 (Version None)
Quarter: 2004Q1

REPORT INFORMATION
  Report Type: 
  Country: None (occurrence: None)
  Receive Date: 20040112
  Receipt Date: 20040112
  Transmission Date: 20041129
  Serious: Yes (Life-Threatening)
  Sender: FDA-Public Use
  Company Number: None

PATIENT
  Sex: Female
  Weight: 54.4316 kg

DRUGS (1)
  1. ENBREL [Suspect]
     Indication: RHEUMATOID ARTHRITIS
     Dosage: TWICE WEEKLY SQ
     Route: 058
     Dates: start: 20000101, end: 20030924

REACTIONS (1)
  - DIFFUSE LARGE B-CELL LYMPHOMA [None]
